FAERS Safety Report 6522096-3 (Version None)
Quarter: 2009Q4

REPORT INFORMATION
  Report Type: 
  Country: None (occurrence: None)
  Receive Date: 20091229
  Receipt Date: 20091229
  Transmission Date: 20100525
  Serious: Yes (Hospitalization)
  Sender: FDA-Public Use
  Company Number: None

PATIENT
  Sex: Female
  Weight: 50.1 kg

DRUGS (16)
  1. LORAZEPAM [Suspect]
     Indication: ANXIETY
     Dosage: 0.5 MG PO X 1
     Route: 048
     Dates: start: 20091016
  2. LORAZEPAM [Suspect]
     Indication: ANXIETY
     Dosage: 0.5 MG PO X 1
     Route: 048
     Dates: start: 20091018
  3. HEPARIN [Concomitant]
  4. AZATHIOPRINE [Concomitant]
  5. CALCIUM/VITO [Concomitant]
  6. CEFEPIME [Concomitant]
  7. FOLIC ACID [Concomitant]
  8. FUROSEMIDE [Concomitant]
  9. GUIFEMISIN [Concomitant]
  10. LANSOPRAZOLE [Concomitant]
  11. METOCLOPRAMIDE [Concomitant]
  12. MIRTAZEPRINE [Concomitant]
  13. PREDNISONE [Concomitant]
  14. SIMVASTATIN [Concomitant]
  15. VANCOMYCIN [Concomitant]
  16. ALBUTEROL [Concomitant]

REACTIONS (4)
  - DRUG HYPERSENSITIVITY [None]
  - MIOSIS [None]
  - SOMNOLENCE [None]
  - UNRESPONSIVE TO STIMULI [None]
